FAERS Safety Report 8812125 (Version 1)
Quarter: 2012Q4

REPORT INFORMATION
  Report Type: 
  Country: US (occurrence: US)
  Receive Date: 20120927
  Receipt Date: 20120927
  Transmission Date: 20130627
  Serious: Yes (Death, Other)
  Sender: FDA-Public Use
  Company Number: US-ROCHE-1128533

PATIENT
  Age: 49 None
  Sex: Male

DRUGS (9)
  1. AVASTIN [Suspect]
     Indication: BRAIN NEOPLASM MALIGNANT
     Route: 065
     Dates: start: 200701
  2. AVASTIN [Suspect]
     Indication: BRAIN NEOPLASM MALIGNANT
     Route: 065
  3. TEMODAR [Concomitant]
     Route: 065
     Dates: start: 20071018
  4. IFOSFAMIDE [Concomitant]
     Route: 065
     Dates: end: 20071108
  5. CARBOPLATIN [Concomitant]
  6. ETOPOSIDE [Concomitant]
  7. TAXOL [Concomitant]
  8. DOXIL (UNITED STATES) [Concomitant]
     Route: 065
  9. CPT-11 [Concomitant]
     Route: 065
     Dates: start: 200701

REACTIONS (4)
  - Death [Fatal]
  - Thrombocytopenia [Unknown]
  - Deep vein thrombosis [Unknown]
  - Disease progression [Unknown]
